FAERS Safety Report 4881061-2 (Version None)
Quarter: 2005Q4

REPORT INFORMATION
  Report Type: 
  Country: None (occurrence: None)
  Receive Date: 20051223
  Receipt Date: 20050928
  Transmission Date: 20060501
  Serious: No
  Sender: FDA-Public Use
  Company Number: 05P-163-0312206-00

PATIENT
  Age: 67 Year
  Sex: Female
  Weight: 48.5349 kg

DRUGS (5)
  1. HUMIRA [Suspect]
     Indication: RHEUMATOID ARTHRITIS
     Dosage: 40 MG, 1 IN 2 WK, SUBCUTANEOUS
     Route: 058
     Dates: start: 20050425, end: 20050830
  2. TENORETIC 100 [Concomitant]
  3. CORTISONE ACETATE TAB [Concomitant]
  4. NAPROXEN SODIUM [Concomitant]
  5. VERAPAMIL HYDROCHLORIDE [Concomitant]

REACTIONS (6)
  - BLOOD POTASSIUM DECREASED [None]
  - COUGH [None]
  - FATIGUE [None]
  - INJECTION SITE IRRITATION [None]
  - INJECTION SITE PAIN [None]
  - PYREXIA [None]
